FAERS Safety Report 20960493 (Version 4)
Quarter: 2022Q4

REPORT INFORMATION
  Report Type: Report from Study
  Country: US (occurrence: US)
  Receive Date: 20220615
  Receipt Date: 20221129
  Transmission Date: 20230112
  Serious: Yes (Life-Threatening, Hospitalization)
  Sender: FDA-Public Use
  Company Number: US-NOVARTISPH-NVSC2022US135820

PATIENT
  Age: 66 Year
  Sex: Female
  Weight: 67.9 kg

DRUGS (2)
  1. TAFINLAR [Suspect]
     Active Substance: DABRAFENIB MESYLATE
     Indication: Thyroid cancer
     Dosage: 150 MG, BID
     Route: 065
     Dates: start: 20220501, end: 20220515
  2. MEKINIST [Suspect]
     Active Substance: TRAMETINIB DIMETHYL SULFOXIDE
     Indication: Papillary thyroid cancer
     Dosage: 2 MG, QD
     Route: 065
     Dates: start: 20220501, end: 20220515

REACTIONS (3)
  - Near death experience [Unknown]
  - Sepsis syndrome [Recovered/Resolved]
  - Hypersensitivity [Unknown]

NARRATIVE: CASE EVENT DATE: 20220514
